FAERS Safety Report 10263016 (Version 2)
Quarter: 2014Q2

REPORT INFORMATION
  Report Type: Report from Study
  Country: US (occurrence: US)
  Receive Date: 20140626
  Receipt Date: 20140626
  Transmission Date: 20141212
  Serious: Yes (Other)
  Sender: FDA-Public Use
  Company Number: US-MYLANLABS-2013S1026480

PATIENT
  Age: 88 Year
  Sex: Female

DRUGS (12)
  1. CLOZAPINE TABLETS [Suspect]
     Indication: PSYCHOTIC DISORDER
     Route: 048
     Dates: start: 201307, end: 20140109
  2. CLOZAPINE TABLETS [Suspect]
     Indication: PSYCHOTIC DISORDER
     Route: 048
     Dates: start: 20140417
  3. CLOZAPINE TABLETS [Suspect]
     Indication: PSYCHOTIC DISORDER
     Route: 048
     Dates: start: 20140417
  4. MULTIVITAMIN [Concomitant]
  5. IRON [Concomitant]
  6. MIRALAX /00754501/ [Concomitant]
  7. CIPRO [Concomitant]
  8. ATIVAN [Concomitant]
  9. TYLENOL [Concomitant]
  10. PROTONIX [Concomitant]
  11. CELEXA [Concomitant]
  12. AMITIZA [Concomitant]

REACTIONS (2)
  - Granulocytopenia [Not Recovered/Not Resolved]
  - Leukopenia [Not Recovered/Not Resolved]
